FAERS Safety Report 5689414-X (Version None)
Quarter: 2008Q1

REPORT INFORMATION
  Report Type: 
  Country: None (occurrence: None)
  Receive Date: 20080331
  Receipt Date: 20080319
  Transmission Date: 20080703
  Serious: Yes (Other)
  Sender: FDA-Public Use
  Company Number: US-PFIZER INC-2008007158

PATIENT
  Sex: Male
  Weight: 110.7 kg

DRUGS (2)
  1. SUTENT [Suspect]
     Indication: RENAL CELL CARCINOMA
     Route: 048
     Dates: start: 20070611, end: 20071230
  2. SUTENT [Suspect]

REACTIONS (1)
  - NEPHROPATHY TOXIC [None]
